FAERS Safety Report 13541296 (Version 3)
Quarter: 2017Q2

REPORT INFORMATION
  Report Type: Spontaneous
  Country: IT (occurrence: IT)
  Receive Date: 20170512
  Receipt Date: 20170605
  Transmission Date: 20170830
  Serious: Yes (Death, Other)
  Sender: FDA-Public Use
  Company Number: IT-BAYER-2017-085987

PATIENT
  Age: 72 Year
  Sex: Male

DRUGS (3)
  1. REGORAFENIB [Suspect]
     Active Substance: REGORAFENIB
     Indication: ADENOCARCINOMA OF COLON
     Dosage: 160 MG, UNK
     Route: 048
     Dates: start: 201510
  2. REGORAFENIB [Suspect]
     Active Substance: REGORAFENIB
     Indication: ADENOCARCINOMA OF COLON
     Dosage: 120 MG, UNK
     Route: 048
     Dates: start: 2015
  3. REGORAFENIB [Suspect]
     Active Substance: REGORAFENIB
     Indication: ADENOCARCINOMA OF COLON
     Dosage: 80 MG, UNK
     Route: 048
     Dates: start: 2016

REACTIONS (7)
  - Adenocarcinoma of colon [None]
  - Hepatic enzyme increased [None]
  - Hepatic enzyme increased [None]
  - Death [Fatal]
  - Aspartate aminotransferase increased [None]
  - Fatigue [None]
  - Alanine aminotransferase increased [None]

NARRATIVE: CASE EVENT DATE: 2015
